FAERS Safety Report 14224003 (Version 1)
Quarter: 2017Q4

REPORT INFORMATION
  Report Type: Spontaneous
  Country: US (occurrence: US)
  Receive Date: 20171122
  Receipt Date: 20171122
  Transmission Date: 20180321
  Serious: Yes (Other)
  Sender: FDA-Public Use
  Company Number: None

PATIENT
  Age: 65 Year
  Sex: Male
  Weight: 91.8 kg

DRUGS (1)
  1. CLOMIPGENE CITRATE [Suspect]
     Active Substance: CLOMIPHENE CITRATE
     Indication: BLOOD TESTOSTERONE DECREASED
     Dosage: ?          OTHER FREQUENCY:3X PER WEEK;?

REACTIONS (1)
  - Thrombosis [None]

NARRATIVE: CASE EVENT DATE: 20170606
